FAERS Safety Report 7720430-X (Version None)
Quarter: 2011Q3

REPORT INFORMATION
  Report Type: 
  Country: None (occurrence: None)
  Receive Date: 20110825
  Receipt Date: 20110816
  Transmission Date: 20111222
  Serious: Yes (Hospitalization)
  Sender: FDA-Public Use
  Company Number: LTI2011A00243

PATIENT
  Age: 84 Year
  Sex: Female

DRUGS (7)
  1. LANSOPRAZOLE [Suspect]
     Dosage: 15 MG (15 MG, 1 IN 1 D), ORAL
     Route: 048
     Dates: start: 20110701
  2. COZAAR [Suspect]
     Dosage: 50 MG (50 MG, 1 IN 1 D), ORAL
     Route: 048
     Dates: start: 20010101, end: 20110701
  3. ISOBAR (ISOSORBIDE DINITRATE) [Suspect]
     Dosage: 0.5 DF (0.5 DF,1 IN 1 D), ORAL
     Route: 048
     Dates: start: 20010101, end: 20110701
  4. FUROSEMIDE [Suspect]
     Dosage: 20 MG (20 MG, 1 IN 1 D),ORAL
     Route: 048
     Dates: end: 20110701
  5. TANAKAN (GINKGO SILOBA EXTRACT) [Suspect]
     Dosage: 2 DF (1 DF,2 IN 1 D), ORAL
     Dates: end: 20110701
  6. STAGID (METFORMIN EMBONATE) [Suspect]
     Dosage: 2100 MG (700 MG,3 IN 1 D) 1), ORAL
     Route: 048
     Dates: start: 20010101, end: 20110701
  7. PAROXETINE HYDROCHLORIDE [Suspect]
     Dosage: 40 MG (20 MG, 2 IN 1 D), ORAL
     Route: 048
     Dates: start: 20010101, end: 20110701

REACTIONS (2)
  - RENAL FAILURE ACUTE [None]
  - ATRIAL FIBRILLATION [None]
